FAERS Safety Report 7326798-0 (Version None)
Quarter: 2011Q1

REPORT INFORMATION
  Report Type: 
  Country: None (occurrence: None)
  Receive Date: 20110302
  Receipt Date: 20090804
  Transmission Date: 20110831
  Serious: No
  Sender: FDA-Public Use
  Company Number: US-PFIZER INC-2009252528

PATIENT
  Sex: Male
  Weight: 80.272 kg

DRUGS (3)
  1. ZONEGRAN [Concomitant]
     Dosage: UNK
  2. AMOXICILLIN [Interacting]
     Indication: INFECTION
     Dosage: 500 MG, 1X/DAY
  3. DILANTIN [Suspect]
     Indication: EPILEPSY
     Dosage: 100 MG, 3X/DAY
     Route: 048

REACTIONS (2)
  - ANTICONVULSANT DRUG LEVEL INCREASED [None]
  - DRUG INTERACTION [None]
